FAERS Safety Report 16964822 (Version 1)
Quarter: 2019Q4

REPORT INFORMATION
  Report Type: Spontaneous
  Country: FR (occurrence: FR)
  Receive Date: 20191028
  Receipt Date: 20191028
  Transmission Date: 20200122
  Serious: Yes (Hospitalization, Other)
  Sender: FDA-Public Use
  Company Number: FR-AUROBINDO-AUR-APL-2019-068183

PATIENT
  Age: 68 Year
  Sex: Male
  Weight: 90 kg

DRUGS (8)
  1. AVODART [Concomitant]
     Active Substance: DUTASTERIDE
     Indication: PRODUCT USED FOR UNKNOWN INDICATION
     Dosage: UNK
     Route: 065
  2. DAPTOMYCINE ACCORD [Suspect]
     Active Substance: DAPTOMYCIN
     Indication: INFECTION
     Dosage: UNK
     Route: 042
     Dates: start: 20190912, end: 20190916
  3. TAZOBACTAM SODIUM AND PIPERACILLIN SODIUM [Suspect]
     Active Substance: PIPERACILLIN SODIUM\TAZOBACTAM SODIUM
     Indication: INFECTION
     Dosage: 2 DOSAGE FORM, ONCE A DAY
     Route: 042
     Dates: start: 20190911, end: 20190912
  4. MEROPENEM ARROW 1000 MG POWDER FOR SOLUTION FOR INJECION OR INFUSION [Suspect]
     Active Substance: MEROPENEM
     Indication: INFECTION
     Dosage: 4 GRAM, ONCE A DAY
     Route: 042
     Dates: start: 20190912, end: 20190917
  5. FENOFIBRATE. [Concomitant]
     Active Substance: FENOFIBRATE
     Indication: PRODUCT USED FOR UNKNOWN INDICATION
     Dosage: UNK
     Route: 065
  6. TRIMEBUTINE [Concomitant]
     Active Substance: TRIMEBUTINE
     Indication: PRODUCT USED FOR UNKNOWN INDICATION
     Dosage: UNK
     Route: 065
  7. AMIKACINE MYLAN [Suspect]
     Active Substance: AMIKACIN
     Indication: INFECTION
     Dosage: 1.2 GRAM, ONCE A DAY
     Route: 042
     Dates: start: 20190911, end: 20190912
  8. TAMSULOSINE [Concomitant]
     Active Substance: TAMSULOSIN HYDROCHLORIDE
     Indication: PRODUCT USED FOR UNKNOWN INDICATION
     Dosage: UNK
     Route: 065

REACTIONS (2)
  - Haematuria [Recovering/Resolving]
  - Thrombocytopenia [Recovered/Resolved]

NARRATIVE: CASE EVENT DATE: 20190913
